FAERS Safety Report 8092487-0 (Version None)
Quarter: 2012Q1

REPORT INFORMATION
  Report Type: 
  Country: None (occurrence: None)
  Receive Date: 20120128
  Receipt Date: 20110728
  Transmission Date: 20120608
  Serious: No
  Sender: FDA-Public Use
  Company Number: US-ABBOTT-11P-163-0842650-00

PATIENT
  Age: 53 Year
  Sex: Female

DRUGS (2)
  1. HUMIRA [Suspect]
     Indication: PSORIASIS
     Dates: start: 20110301
  2. UNKNOWN HORMONE MEDICATION [Concomitant]
     Indication: HORMONE THERAPY
     Route: 048

REACTIONS (4)
  - INCORRECT STORAGE OF DRUG [None]
  - DRY SKIN [None]
  - PSORIASIS [None]
  - SKIN FISSURES [None]
